FAERS Safety Report 21566724 (Version 1)
Quarter: 2022Q4

REPORT INFORMATION
  Report Type: Spontaneous
  Country: CN (occurrence: CN)
  Receive Date: 20221108
  Receipt Date: 20221108
  Transmission Date: 20230113
  Serious: Yes (Hospitalization, Other)
  Sender: FDA-Public Use
  Company Number: None

PATIENT
  Age: 32 Year
  Sex: Female

DRUGS (4)
  1. CYCLOPHOSPHAMIDE [Suspect]
     Active Substance: CYCLOPHOSPHAMIDE
     Indication: Chemotherapy
     Dosage: 0.98G, QD, D8, DILUTED WITH 0.9% SODIUM CHLORIDE 100ML
     Route: 042
     Dates: start: 20221014, end: 20221014
  2. SODIUM CHLORIDE [Suspect]
     Active Substance: SODIUM CHLORIDE
     Indication: Medication dilution
     Dosage: 100ML, QD, D8, USED TO DILUTE 0.98 G CYCLOPHOSPHAMIDE
     Route: 042
     Dates: start: 20221014, end: 20221014
  3. SODIUM CHLORIDE [Suspect]
     Active Substance: SODIUM CHLORIDE
     Dosage: 20ML, QD, D8,  USED TO DILUTE 2 MG VINCRISTINE SULFATE
     Route: 042
     Dates: start: 20221014, end: 20221014
  4. VINCRISTINE SULFATE [Concomitant]
     Active Substance: VINCRISTINE SULFATE
     Indication: Chemotherapy
     Dosage: 2 MG, QD, D8, DILUTED WITH 0.9% SODIUM CHLORIDE 20ML
     Route: 042
     Dates: start: 20221014, end: 20221014

REACTIONS (1)
  - Myelosuppression [Recovering/Resolving]

NARRATIVE: CASE EVENT DATE: 20221019
